FAERS Safety Report 9400407 (Version 3)
Quarter: 2013Q4

REPORT INFORMATION
  Report Type: Spontaneous
  Country: JP (occurrence: JP)
  Receive Date: 20130715
  Receipt Date: 20131227
  Transmission Date: 20140711
  Serious: Yes (Death, Hospitalization)
  Sender: FDA-Public Use
  Company Number: JP-BAYER-2013-084422

PATIENT
  Age: 57 Year
  Sex: Female

DRUGS (6)
  1. STIVARGA [Suspect]
     Indication: RECTAL CANCER
     Dosage: 160 MG/DAY ON FOR 3 WEEKS AND OFF FOR 1 WEEK
     Route: 048
     Dates: start: 20130611, end: 20130626
  2. LOXONIN [Concomitant]
     Dosage: DAILY DOSE 120 MG
     Route: 048
  3. MAGMITT [Concomitant]
     Dosage: DAILY DOSE 1980 MG
     Route: 048
  4. NEXIUM [Concomitant]
     Dosage: DAILY DOSE 20 MG
     Route: 048
  5. SENNARIDE [Concomitant]
     Dosage: DAILY DOSE 12 MG
     Route: 048
  6. CODEINE PHOSPHATE [Concomitant]
     Dosage: DAILY DOSE 20 MG
     Route: 048

REACTIONS (5)
  - Liver disorder [Not Recovered/Not Resolved]
  - Lung disorder [Fatal]
  - Blood pressure increased [Recovered/Resolved]
  - Platelet count decreased [Not Recovered/Not Resolved]
  - Malaise [Not Recovered/Not Resolved]
